FAERS Safety Report 20109401 (Version 2)
Quarter: 2021Q4

REPORT INFORMATION
  Report Type: Other
  Country: US (occurrence: US)
  Receive Date: 20211124
  Receipt Date: 20211224
  Transmission Date: 20220303
  Serious: Yes (Hospitalization)
  Sender: FDA-Public Use
  Company Number: US-NEUROCRINE BIOSCIENCES INC.-2021NBI06731

PATIENT

DRUGS (6)
  1. INGREZZA [Suspect]
     Active Substance: VALBENAZINE
     Indication: Tardive dyskinesia
     Dosage: 40 MILLIGRAM, QD
     Route: 048
     Dates: start: 20210823, end: 20211019
  2. VISTARIL (HYDROXYZINE HYDROCHLORIDE) [Concomitant]
     Active Substance: HYDROXYZINE HYDROCHLORIDE
     Indication: Anxiety
     Dosage: 50 MILLIGRAM, PRN
     Route: 048
     Dates: start: 20210802, end: 20211021
  3. LITHIUM [Concomitant]
     Active Substance: LITHIUM
     Indication: Schizoaffective disorder
     Dosage: 600 MILLIGRAM, BID
     Route: 048
  4. ZYPREXA [Concomitant]
     Active Substance: OLANZAPINE
     Indication: Schizoaffective disorder
     Dosage: 20 MILLIGRAM, QHS
     Route: 048
     Dates: start: 20210824, end: 20211027
  5. INDERAL [Concomitant]
     Active Substance: PROPRANOLOL HYDROCHLORIDE
     Indication: Anxiety
     Dosage: 10 MILLIGRAM, BID
     Route: 048
     Dates: start: 20210308, end: 20211027
  6. INVEGA TRINZA [Concomitant]
     Active Substance: PALIPERIDONE PALMITATE
     Indication: Schizoaffective disorder
     Dosage: 410 MILLIGRAM EVERY 3 MONTHS
     Route: 030
     Dates: start: 20181113

REACTIONS (1)
  - Mania [Recovered/Resolved]
